FAERS Safety Report 13381767 (Version 1)
Quarter: 2017Q1

REPORT INFORMATION
  Report Type: Spontaneous
  Country: US (occurrence: US)
  Receive Date: 20170329
  Receipt Date: 20170329
  Transmission Date: 20170429
  Serious: Yes (Death)
  Sender: FDA-Public Use
  Company Number: None

PATIENT

DRUGS (1)
  1. EXPAREL [Suspect]
     Active Substance: BUPIVACAINE

REACTIONS (4)
  - Pulse absent [None]
  - Drug effect prolonged [None]
  - Snoring [None]
  - Oxygen saturation decreased [None]
